FAERS Safety Report 6539005-3 (Version None)
Quarter: 2010Q1

REPORT INFORMATION
  Report Type: 
  Country: None (occurrence: None)
  Receive Date: 20100113
  Receipt Date: 20100113
  Transmission Date: 20100710
  Serious: No
  Sender: FDA-Public Use
  Company Number: None

PATIENT
  Sex: Female
  Weight: 88.4 kg

DRUGS (9)
  1. VANCOMYCIN [Suspect]
     Indication: STAPHYLOCOCCAL BACTERAEMIA
     Dosage: 1500MG Q12H IV
     Route: 042
  2. DILAUDID [Concomitant]
  3. TYLENOL (CAPLET) [Concomitant]
  4. VICODIN [Concomitant]
  5. ZOFRAN [Concomitant]
  6. METHADONE [Concomitant]
  7. GENTAMICIN [Concomitant]
  8. NEXIUM [Concomitant]
  9. DULCOLAX [Concomitant]

REACTIONS (4)
  - ERYTHEMA [None]
  - INFUSION RELATED REACTION [None]
  - RASH ERYTHEMATOUS [None]
  - RASH PRURITIC [None]
